FAERS Safety Report 10216946 (Version 1)
Quarter: 2014Q2

REPORT INFORMATION
  Report Type: Spontaneous
  Country: US (occurrence: US)
  Receive Date: 20140604
  Receipt Date: 20140604
  Transmission Date: 20141212
  Serious: Yes (Hospitalization, Other)
  Sender: FDA-Public Use
  Company Number: US-VIIV HEALTHCARE LIMITED-A1074963A

PATIENT
  Age: 50 Year
  Sex: Male

DRUGS (4)
  1. TIVICAY [Suspect]
     Indication: HIV INFECTION
     Dosage: 50MG PER DAY
     Route: 048
     Dates: start: 201312
  2. FLUCONAZOLE [Concomitant]
  3. BACTRIM [Concomitant]
  4. MINOCYCLINE [Concomitant]

REACTIONS (3)
  - Dyspnoea [Recovered/Resolved]
  - Cryptococcosis [Recovered/Resolved]
  - Nocardiosis [Recovered/Resolved]
